FAERS Safety Report 4877643-4 (Version None)
Quarter: 2006Q1

REPORT INFORMATION
  Report Type: 
  Country: None (occurrence: None)
  Receive Date: 20060109
  Receipt Date: 20051223
  Transmission Date: 20060701
  Serious: Yes (Death, Life-Threatening)
  Sender: FDA-Public Use
  Company Number: 2005171015

PATIENT
  Age: 15 Year
  Sex: Female

DRUGS (3)
  1. SOLU-MEDROL [Suspect]
     Indication: STATUS ASTHMATICUS
     Dosage: (125 MG, INTRAVENOUS
     Route: 030
     Dates: end: 20051121
  2. SALBUTAMOL (SALBUTAMOL) [Concomitant]
  3. ALL OTHER THERAPEUTIC PRODUCTS (ALL OTHER THERAPEUTIC PRODUCTS) [Concomitant]

REACTIONS (5)
  - ANAPHYLACTIC REACTION [None]
  - CARDIAC ARREST [None]
  - INJECTION SITE IRRITATION [None]
  - NASOPHARYNGITIS [None]
  - STATUS ASTHMATICUS [None]
